FAERS Safety Report 6462612-3 (Version None)
Quarter: 2009Q4

REPORT INFORMATION
  Report Type: 
  Country: None (occurrence: None)
  Receive Date: 20091130
  Receipt Date: 20091116
  Transmission Date: 20100525
  Serious: Yes (Hospitalization)
  Sender: FDA-Public Use
  Company Number: AU-MYLANLABS-2009S1020139

PATIENT
  Age: 45 Year
  Sex: Female

DRUGS (6)
  1. DOXYLIN [Suspect]
     Indication: MALARIA PROPHYLAXIS
     Route: 048
     Dates: start: 20090901, end: 20091008
  2. METHOTREXATE [Suspect]
     Indication: RHEUMATOID ARTHRITIS
  3. MOBIC [Suspect]
     Indication: RHEUMATOID ARTHRITIS
  4. FOLIC ACID [Concomitant]
     Indication: RHEUMATOID ARTHRITIS
  5. ALDACTONE [Concomitant]
     Indication: ACNE
  6. FISH OIL [Concomitant]

REACTIONS (2)
  - ABDOMINAL PAIN [None]
  - LARGE INTESTINAL ULCER [None]
